FAERS Safety Report 10934731 (Version 2)
Quarter: 2015Q2

REPORT INFORMATION
  Report Type: Spontaneous
  Country: US (occurrence: US)
  Receive Date: 20150320
  Receipt Date: 20150407
  Transmission Date: 20150821
  Serious: Yes (Death, Life-Threatening, Hospitalization, Congenital Anomaly)
  Sender: FDA-Public Use
  Company Number: US-ELI_LILLY_AND_COMPANY-US201503006362

PATIENT
  Age: 1 Day

DRUGS (1)
  1. PROZAC [Suspect]
     Active Substance: FLUOXETINE HYDROCHLORIDE
     Indication: PRODUCT USED FOR UNKNOWN INDICATION
     Dosage: 20 MG, QD
     Route: 064
     Dates: end: 19990211

REACTIONS (4)
  - Neonatal respiratory distress syndrome [Unknown]
  - Hypoplastic left heart syndrome [Unknown]
  - Death [Fatal]
  - Convulsion neonatal [Unknown]

NARRATIVE: CASE EVENT DATE: 19990829
